FAERS Safety Report 19007807 (Version 1)
Quarter: 2021Q1

REPORT INFORMATION
  Report Type: Spontaneous
  Country: US (occurrence: US)
  Receive Date: 20210315
  Receipt Date: 20210315
  Transmission Date: 20210420
  Serious: No
  Sender: FDA-Public Use
  Company Number: US-SA-2021SA082541

PATIENT
  Age: 63 Year
  Sex: Female

DRUGS (8)
  1. BETAMETHASONE DIPROPIONATE. [Concomitant]
     Active Substance: BETAMETHASONE DIPROPIONATE
  2. TACROLIMUS. [Concomitant]
     Active Substance: TACROLIMUS
  3. DUPIXENT [Suspect]
     Active Substance: DUPILUMAB
     Indication: DERMATITIS ATOPIC
     Dosage: 300 MG, QOW
     Route: 058
     Dates: start: 202003
  4. CLOBETASOL [Concomitant]
     Active Substance: CLOBETASOL
  5. ZINC. [Concomitant]
     Active Substance: ZINC
  6. ELIDEL [Concomitant]
     Active Substance: PIMECROLIMUS
  7. VITAMIN D3 [Concomitant]
     Active Substance: CHOLECALCIFEROL
  8. DAILY VITE [ASCORBIC ACID;COLECALCIFEROL;CYANOCOBALAMIN;FOLIC ACID;NIC [Concomitant]

REACTIONS (1)
  - Therapeutic response decreased [Unknown]
